FAERS Safety Report 9288437 (Version 1)
Quarter: 2013Q2

REPORT INFORMATION
  Report Type: Report from Study
  Country: BR (occurrence: BR)
  Receive Date: 20130514
  Receipt Date: 20130514
  Transmission Date: 20140414
  Serious: Yes (Disabling)
  Sender: FDA-Public Use
  Company Number: BR-BAYER-2013-057273

PATIENT
  Age: 66 Year
  Sex: Female

DRUGS (2)
  1. BETAFERON [Suspect]
     Indication: SECONDARY PROGRESSIVE MULTIPLE SCLEROSIS
     Dosage: 1 ML, QOD
     Route: 058
     Dates: start: 2005
  2. SONOBOM [Concomitant]
     Indication: INSOMNIA
     Dosage: 1 DF, QD
     Route: 048
     Dates: start: 2012

REACTIONS (11)
  - Gait disturbance [Not Recovered/Not Resolved]
  - Formication [Not Recovered/Not Resolved]
  - Muscle rigidity [Not Recovered/Not Resolved]
  - Hypoaesthesia [Not Recovered/Not Resolved]
  - Arthralgia [Not Recovered/Not Resolved]
  - Memory impairment [Not Recovered/Not Resolved]
  - Nocturia [Not Recovered/Not Resolved]
  - Fall [Not Recovered/Not Resolved]
  - Gait disturbance [Not Recovered/Not Resolved]
  - Gait disturbance [Not Recovered/Not Resolved]
  - Eye pain [Not Recovered/Not Resolved]
